FAERS Safety Report 5387290-6 (Version None)
Quarter: 2007Q3

REPORT INFORMATION
  Report Type: 
  Country: None (occurrence: None)
  Receive Date: 20070716
  Receipt Date: 20070705
  Transmission Date: 20080115
  Serious: Yes (Other)
  Sender: FDA-Public Use
  Company Number: PHHO2006US17543

PATIENT
  Age: 49 Year
  Sex: Male
  Weight: 91.5 kg

DRUGS (3)
  1. VITAMIN D [Concomitant]
  2. CALCIUM CHLORIDE [Concomitant]
  3. ZOLEDRONIC ACID [Suspect]
     Indication: METASTASES TO BONE
     Dosage: 4MG EVERY 3-4 WEEKS
     Route: 042
     Dates: start: 20050127, end: 20060201

REACTIONS (3)
  - DENTAL CARIES [None]
  - OSTEONECROSIS [None]
  - PAIN IN JAW [None]
